FAERS Safety Report 9239361 (Version 1)
Quarter: 2013Q2

REPORT INFORMATION
  Report Type: Spontaneous
  Country: CA (occurrence: CA)
  Receive Date: 20130418
  Receipt Date: 20130418
  Transmission Date: 20140414
  Serious: Yes (Other)
  Sender: FDA-Public Use
  Company Number: CA-PFIZER INC-2012304639

PATIENT
  Age: 65 Year
  Sex: Female
  Weight: 52.15 kg

DRUGS (3)
  1. LIPITOR [Suspect]
     Indication: BLOOD CHOLESTEROL INCREASED
     Dosage: 10 MG, 1X/DAY
     Dates: start: 20050401, end: 20130322
  2. ACTONEL [Concomitant]
     Dosage: 10 MG, WEEKLY
  3. ACTONEL [Concomitant]
     Dosage: 10 MG, MONTHLY

REACTIONS (7)
  - Muscle atrophy [Not Recovered/Not Resolved]
  - Amnesia [Not Recovered/Not Resolved]
  - Myalgia [Not Recovered/Not Resolved]
  - Cutis laxa [Not Recovered/Not Resolved]
  - Arthralgia [Not Recovered/Not Resolved]
  - Abnormal sensation in eye [Not Recovered/Not Resolved]
  - Pollakiuria [Not Recovered/Not Resolved]
